FAERS Safety Report 25835882 (Version 1)
Quarter: 2025Q3

REPORT INFORMATION
  Report Type: Spontaneous
  Country: US (occurrence: None)
  Receive Date: 20250922
  Receipt Date: 20250922
  Transmission Date: 20251021
  Serious: Yes (Disabling)
  Sender: FDA-CTU
  Company Number: None

PATIENT
  Age: 43 Year
  Sex: Female
  Weight: 58.5 kg

DRUGS (3)
  1. FLONASE [Suspect]
     Active Substance: FLUTICASONE PROPIONATE
     Indication: Nasal congestion
     Dosage: FREQUENCY : DAILY;?
     Route: 055
     Dates: start: 20130101, end: 20230415
  2. FLONASE [Suspect]
     Active Substance: FLUTICASONE PROPIONATE
     Indication: Multiple allergies
  3. NASONEX [Suspect]
     Active Substance: MOMETASONE FUROATE

REACTIONS (3)
  - Cataract subcapsular [None]
  - Cataract [None]
  - Intraocular pressure increased [None]

NARRATIVE: CASE EVENT DATE: 20230415
